FAERS Safety Report 25224103 (Version 4)
Quarter: 2025Q4

REPORT INFORMATION
  Report Type: Report from Study
  Country: CA (occurrence: CA)
  Receive Date: 20250422
  Receipt Date: 20251106
  Transmission Date: 20260118
  Serious: Yes (Disabling, Other)
  Sender: CELLTRION
  Company Number: CA-CELLTRION INC.-2024CA028198

PATIENT

DRUGS (4)
  1. USTEKINUMAB [Suspect]
     Active Substance: USTEKINUMAB
     Indication: Crohn^s disease
     Dosage: 90 MG, EVERY 4 WEEKS
     Route: 058
     Dates: start: 20241125
  2. USTEKINUMAB [Suspect]
     Active Substance: USTEKINUMAB
     Dosage: 90 MG
     Route: 058
  3. POLYETHYLENE GLYCOL 3350 [Concomitant]
     Active Substance: POLYETHYLENE GLYCOL 3350
     Dosage: UNK
     Dates: start: 20250509
  4. POLYETHYLENE GLYCOLS [Concomitant]
     Active Substance: POLYETHYLENE GLYCOLS

REACTIONS (5)
  - Constipation [Recovered/Resolved]
  - Arthralgia [Recovered/Resolved]
  - Arthralgia [Recovered/Resolved]
  - Urinary tract infection [Recovered/Resolved]
  - Off label use [Recovered/Resolved]

NARRATIVE: CASE EVENT DATE: 20250415
